FAERS Safety Report 20218667 (Version 4)
Quarter: 2022Q1

REPORT INFORMATION
  Report Type: Spontaneous
  Country: US (occurrence: US)
  Receive Date: 20211222
  Receipt Date: 20220328
  Transmission Date: 20220423
  Serious: Yes (Other)
  Sender: FDA-Public Use
  Company Number: US-BAYER-2021A271972

PATIENT
  Age: 75 Year
  Sex: Female

DRUGS (3)
  1. KOGENATE FS [Suspect]
     Active Substance: ANTIHEMOPHILIC FACTOR, HUMAN RECOMBINANT
     Dosage: 1000 IU
     Route: 042
  2. KOGENATE FS [Suspect]
     Active Substance: ANTIHEMOPHILIC FACTOR, HUMAN RECOMBINANT
     Dosage: 2 DF, FOR THE LEFT ANKLE BLEED TREATMENT
     Route: 042
  3. KOGENATE FS [Suspect]
     Active Substance: ANTIHEMOPHILIC FACTOR, HUMAN RECOMBINANT
     Dosage: TREATMENT OF LEFT ANKLE BLEEDING
     Dates: start: 20220312

REACTIONS (3)
  - Haemarthrosis [Recovered/Resolved]
  - Removal of internal fixation [None]
  - Haemarthrosis [None]

NARRATIVE: CASE EVENT DATE: 20220312
